FAERS Safety Report 10018363 (Version 1)
Quarter: 2014Q1

REPORT INFORMATION
  Report Type: Spontaneous
  Country: DE (occurrence: DE)
  Receive Date: 20140318
  Receipt Date: 20140318
  Transmission Date: 20141002
  Serious: Yes (Other)
  Sender: FDA-Public Use
  Company Number: DE-BAYER-2014-036894

PATIENT
  Age: 72 Year
  Sex: Female
  Weight: 59 kg

DRUGS (9)
  1. AVALOX [Suspect]
     Indication: PNEUMONIA
     Dosage: 400 MG, ONCE
     Route: 041
     Dates: start: 20140221
  2. TRYASOL [Concomitant]
     Route: 048
  3. AMLODIPIN [Concomitant]
     Dosage: 5 MG, UNK
     Route: 048
  4. CAPTOHEXAL [Concomitant]
     Dosage: 50 MG, UNK
     Route: 048
  5. BELOC ZOK [Concomitant]
     Route: 048
  6. KALINOR [Concomitant]
     Route: 048
  7. VIGANTOLETTEN [Concomitant]
     Route: 048
  8. PANTOZOL [Concomitant]
     Dosage: 40 MG, UNK
     Route: 048
  9. ACC [Concomitant]
     Route: 048

REACTIONS (6)
  - Oxygen saturation decreased [Recovered/Resolved]
  - Bronchial obstruction [Recovered/Resolved]
  - Dyspnoea [Recovered/Resolved]
  - Flushing [Recovered/Resolved]
  - Hyperhidrosis [Recovered/Resolved]
  - Pruritus generalised [Recovered/Resolved]
